FAERS Safety Report 20514902 (Version 2)
Quarter: 2022Q2

REPORT INFORMATION
  Report Type: Report from Study
  Country: BR (occurrence: BR)
  Receive Date: 20220224
  Receipt Date: 20220403
  Transmission Date: 20220721
  Serious: Yes (Other)
  Sender: FDA-Public Use
  Company Number: BR-BoehringerIngelheim-2020-MR-017687

PATIENT
  Age: 49 Year
  Sex: Female
  Weight: 62 kg

DRUGS (6)
  1. OFEV [Suspect]
     Active Substance: NINTEDANIB
     Indication: Idiopathic pulmonary fibrosis
     Route: 048
     Dates: start: 201904, end: 201906
  2. OFEV [Suspect]
     Active Substance: NINTEDANIB
     Indication: Scleroderma
  3. DEXILANT [Concomitant]
     Active Substance: DEXLANSOPRAZOLE
     Indication: Oesophagitis
     Route: 065
  4. DEXILANT [Concomitant]
     Active Substance: DEXLANSOPRAZOLE
     Indication: Gastrooesophageal reflux disease
  5. DILTIAZEM [Concomitant]
     Active Substance: DILTIAZEM
     Indication: Scleroderma
     Route: 065
  6. DOMPERIDONE [Concomitant]
     Active Substance: DOMPERIDONE
     Indication: Pneumonitis
     Route: 065

REACTIONS (15)
  - Multiple organ dysfunction syndrome [Recovered/Resolved]
  - Hepatic cirrhosis [Recovered/Resolved]
  - Idiopathic pulmonary fibrosis [Not Recovered/Not Resolved]
  - Aspartate aminotransferase abnormal [Recovered/Resolved]
  - Alanine aminotransferase abnormal [Recovered/Resolved]
  - Blood bilirubin abnormal [Recovered/Resolved]
  - Gamma-glutamyltransferase abnormal [Recovered/Resolved]
  - Motion sickness [Recovered/Resolved]
  - Dysgeusia [Recovered/Resolved]
  - Decreased appetite [Recovered/Resolved]
  - Diarrhoea [Recovered/Resolved]
  - Abdominal pain [Recovered/Resolved]
  - Nausea [Recovered/Resolved]
  - Feeling abnormal [Unknown]
  - Liver function test abnormal [Recovered/Resolved]

NARRATIVE: CASE EVENT DATE: 20190401
